FAERS Safety Report 5597886-4 (Version None)
Quarter: 2007Q4

REPORT INFORMATION
  Report Type: 
  Country: None (occurrence: None)
  Receive Date: 20071221
  Receipt Date: 20071020
  Transmission Date: 20080405
  Serious: Yes (Other)
  Sender: FDA-Public Use
  Company Number: DSA_30742_2007

PATIENT
  Age: 78 Year
  Sex: Male

DRUGS (3)
  1. DILTIAZEM HYDROCHLORIDE [Suspect]
     Indication: ATRIAL FIBRILLATION
     Dosage: (25MG/5ML) INTRAVENOUS
     Route: 042
     Dates: start: 20070928, end: 20070928
  2. DIGOXIN [Suspect]
     Indication: ATRIAL FIBRILLATION
     Dosage: (DF INTRAVENOUS)
     Route: 042
     Dates: start: 20070928, end: 20070928
  3. AMIODARONE HCL [Suspect]
     Indication: ATRIAL FIBRILLATION
     Dosage: (DF INTRAVENOUS)
     Route: 042
     Dates: start: 20070928, end: 20070928

REACTIONS (2)
  - DRUG INTERACTION [None]
  - PULMONARY OEDEMA [None]
